FAERS Safety Report 12249882 (Version 3)
Quarter: 2016Q2

REPORT INFORMATION
  Report Type: Spontaneous
  Country: DK (occurrence: DK)
  Receive Date: 20160408
  Receipt Date: 20160627
  Transmission Date: 20160815
  Serious: Yes (Hospitalization, Congenital Anomaly)
  Sender: FDA-Public Use
  Company Number: PHHY2016DK044482

PATIENT
  Age: 0 Year
  Sex: Male

DRUGS (1)
  1. SERTRALINE [Suspect]
     Active Substance: SERTRALINE HYDROCHLORIDE
     Indication: DEPRESSION
     Dosage: 100, MG, QD, STRENGTH: 100 MG
     Route: 064
     Dates: start: 2010

REACTIONS (3)
  - Heart disease congenital [Recovered/Resolved]
  - Foetal exposure during pregnancy [Recovered/Resolved]
  - Transposition of the great vessels [Recovered/Resolved]

NARRATIVE: CASE EVENT DATE: 20151229
